FAERS Safety Report 9998251 (Version 5)
Quarter: 2014Q2

REPORT INFORMATION
  Report Type: Report from Study
  Country: US (occurrence: US)
  Receive Date: 20140311
  Receipt Date: 20140624
  Transmission Date: 20141212
  Serious: Yes (Hospitalization)
  Sender: FDA-Public Use
  Company Number: US-AMGEN-USACT2014016829

PATIENT
  Age: 59 Year
  Sex: Female
  Weight: 58.64 kg

DRUGS (11)
  1. PEGFILGRASTIM [Suspect]
     Indication: INVASIVE DUCTAL BREAST CARCINOMA
     Dosage: 6 MG, UNK
     Route: 065
     Dates: start: 20131123, end: 20140103
  2. DOCETAXEL [Concomitant]
     Dosage: 60 - 120 MG, UNK
     Dates: start: 20131122
  3. CARBOPLATIN [Concomitant]
     Dosage: 441 - 541 MG, UNK
     Dates: start: 20131122
  4. TRASTUZUMAB [Concomitant]
     Dosage: 116 - 232 MG, UNK
     Dates: start: 20131122
  5. PALONOSETRON HYDROCHLORIDE [Concomitant]
     Dosage: 250 MG, UNK
     Route: 042
     Dates: start: 20131122, end: 20140102
  6. DEXAMETHASONE [Concomitant]
     Dosage: 10 - 16 MG, UNK
     Route: 048
     Dates: start: 20131121
  7. ACETAMINOPHEN [Concomitant]
     Dosage: 650 MG, UNK
     Route: 048
     Dates: start: 20131122, end: 20140122
  8. DIPHENHYDRAMINE HCL [Concomitant]
     Dosage: 25 MG, UNK
     Route: 042
     Dates: start: 20131211, end: 20140122
  9. CALCIUM [Concomitant]
     Dosage: 1000 MG, UNK
     Route: 048
     Dates: start: 2013
  10. FISH OIL [Concomitant]
     Dosage: 1000 MG, UNK
     Route: 048
     Dates: start: 2013
  11. VITAMIN D                          /00107901/ [Concomitant]
     Dosage: 1000 MG, UNK
     Route: 048
     Dates: start: 2013

REACTIONS (1)
  - Febrile neutropenia [Recovered/Resolved]
